FAERS Safety Report 9703706 (Version 1)
Quarter: 2013Q4

REPORT INFORMATION
  Report Type: Report from Study
  Country: CA (occurrence: CA)
  Receive Date: 20131122
  Receipt Date: 20131122
  Transmission Date: 20140711
  Serious: Yes (Hospitalization)
  Sender: FDA-Public Use
  Company Number: CA-JNJFOC-20131111442

PATIENT
  Age: 67 Year
  Sex: Male
  Weight: 65.6 kg

DRUGS (4)
  1. REMICADE [Suspect]
     Indication: CROHN^S DISEASE
     Route: 042
     Dates: start: 20091010
  2. BRILINTA [Concomitant]
     Route: 065
     Dates: start: 20131022
  3. CARVEDILOL [Concomitant]
     Route: 065
     Dates: start: 20131002
  4. MAVIK [Concomitant]
     Route: 065
     Dates: start: 20131022

REACTIONS (1)
  - Myocardial infarction [Unknown]
